FAERS Safety Report 5305711-1 (Version None)
Quarter: 2007Q2

REPORT INFORMATION
  Report Type: 
  Country: None (occurrence: None)
  Receive Date: 20070424
  Receipt Date: 20070418
  Transmission Date: 20071010
  Serious: Yes (Hospitalization)
  Sender: FDA-Public Use
  Company Number: PHEH2007US05679

PATIENT
  Age: 51 Year
  Sex: Male

DRUGS (6)
  1. ZELNORM [Suspect]
     Indication: CONSTIPATION
     Dosage: 6 MG, BID
     Route: 048
     Dates: start: 20050101, end: 20070418
  2. PLAVIX [Concomitant]
  3. ZOCOR [Concomitant]
  4. LISINOPRIL [Concomitant]
  5. FOLIC ACID [Concomitant]
  6. ASPIRIN [Concomitant]

REACTIONS (3)
  - APHASIA [None]
  - CEREBROVASCULAR ACCIDENT [None]
  - FATIGUE [None]
